FAERS Safety Report 22104789 (Version 1)
Quarter: 2023Q1

REPORT INFORMATION
  Report Type: Spontaneous
  Country: US (occurrence: US)
  Receive Date: 20230316
  Receipt Date: 20230316
  Transmission Date: 20230417
  Serious: Yes (Death, Hospitalization)
  Sender: FDA-Public Use
  Company Number: US-TEVA-2023-US-2865039

PATIENT
  Age: 75 Year
  Sex: Male

DRUGS (4)
  1. CARVEDILOL [Suspect]
     Active Substance: CARVEDILOL
     Indication: Product used for unknown indication
     Route: 065
  2. HYDRALAZINE [Suspect]
     Active Substance: HYDRALAZINE HYDROCHLORIDE
     Indication: Product used for unknown indication
     Route: 065
  3. NOREPINEPHRINE [Suspect]
     Active Substance: NOREPINEPHRINE
     Indication: Toxicity to various agents
     Route: 065
  4. DOPAMINE [Suspect]
     Active Substance: DOPAMINE HYDROCHLORIDE
     Indication: Toxicity to various agents
     Route: 065

REACTIONS (8)
  - Toxicity to various agents [Fatal]
  - Hypotension [Fatal]
  - Bradycardia [Fatal]
  - Coma [Fatal]
  - Depressed level of consciousness [Fatal]
  - Acute kidney injury [Fatal]
  - Cardiac arrest [Fatal]
  - Drug ineffective [Fatal]
